FAERS Safety Report 5976109-8 (Version None)
Quarter: 2008Q4

REPORT INFORMATION
  Report Type: 
  Country: None (occurrence: None)
  Receive Date: 20081202
  Receipt Date: 20081126
  Transmission Date: 20090506
  Serious: Yes (Hospitalization)
  Sender: FDA-Public Use
  Company Number: US-BRISTOL-MYERS SQUIBB COMPANY-13878749

PATIENT
  Age: 58 Year
  Sex: Female
  Weight: 44 kg

DRUGS (4)
  1. CETUXIMAB [Suspect]
     Indication: ANAL CANCER
     Route: 042
     Dates: start: 20070702
  2. CISPLATIN [Suspect]
     Indication: ANAL CANCER
     Route: 042
     Dates: start: 20070510
  3. FLUOROURACIL [Suspect]
     Indication: ANAL CANCER
     Route: 042
     Dates: start: 20070510
  4. RADIATION THERAPY [Suspect]
     Indication: ANAL CANCER
     Dates: start: 20070510

REACTIONS (6)
  - DEHYDRATION [None]
  - DIARRHOEA [None]
  - HYPOKALAEMIA [None]
  - HYPOTENSION [None]
  - INFECTION [None]
  - SINUS ARRHYTHMIA [None]
